FAERS Safety Report 7082513-X (Version None)
Quarter: 2010Q4

REPORT INFORMATION
  Report Type: 
  Country: None (occurrence: None)
  Receive Date: 20101104
  Receipt Date: 20101020
  Transmission Date: 20110411
  Serious: Yes (Other)
  Sender: FDA-Public Use
  Company Number: JP-RANBAXY-2010RR-38689

PATIENT
  Sex: Male

DRUGS (5)
  1. FENOFIBRATE [Suspect]
     Indication: HYPERLIPIDAEMIA
     Dosage: 100 MG, UNK
     Route: 048
     Dates: start: 20100417, end: 20100918
  2. CELIPROLOL HYDROCHLORIDE [Concomitant]
     Indication: PRODUCT USED FOR UNKNOWN INDICATION
     Route: 065
  3. AMLODIPINE BESYLATE [Concomitant]
     Indication: PRODUCT USED FOR UNKNOWN INDICATION
     Dosage: UNK
     Route: 065
     Dates: start: 20061221
  4. BIFIDOBACTERIUM [Concomitant]
     Indication: PRODUCT USED FOR UNKNOWN INDICATION
     Dosage: UNK
     Route: 065
     Dates: start: 20090114
  5. MAGNESIUM OXIDE [Concomitant]
     Dosage: UNK
     Dates: start: 20090114

REACTIONS (1)
  - HEPATIC FUNCTION ABNORMAL [None]
